FAERS Safety Report 4500409-1 (Version None)
Quarter: 2004Q3

REPORT INFORMATION
  Report Type: 
  Country: None (occurrence: None)
  Receive Date: 20040928
  Receipt Date: 20040802
  Transmission Date: 20050211
  Serious: No
  Sender: FDA-Public Use
  Company Number: 04P-163-0268643-00

PATIENT
  Age: 67 Year
  Sex: Female
  Weight: 65.7716 kg

DRUGS (12)
  1. HUMIRA [Suspect]
     Indication: PSORIATIC ARTHROPATHY
     Dosage: 40 MG SUBCUTANEOUS
     Route: 058
     Dates: start: 20040722
  2. MORPHINE SULFATE [Concomitant]
  3. BETAPASTE [Concomitant]
  4. CAPTOPRIL [Concomitant]
  5. OMEPRAZOLE [Concomitant]
  6. FOLIC ACID [Concomitant]
  7. PREDNISONE [Concomitant]
  8. CALCIUM [Concomitant]
  9. LEXAPRO [Concomitant]
  10. GABAPENTIN [Concomitant]
  11. TOCOPHERAOL [Concomitant]
  12. RISEDRONATE SODIUM [Concomitant]

REACTIONS (1)
  - INJECTION SITE BURNING [None]
